FAERS Safety Report 19122727 (Version 1)
Quarter: 2021Q2

REPORT INFORMATION
  Report Type: Spontaneous
  Country: US (occurrence: US)
  Receive Date: 20210412
  Receipt Date: 20210412
  Transmission Date: 20210717
  Serious: Yes (Life-Threatening, Hospitalization, Other)
  Sender: FDA-Public Use
  Company Number: US-ADAREPHARM-2021-US-000008

PATIENT
  Age: 55 Year
  Sex: Female

DRUGS (3)
  1. DEXAMETHASONE. [Concomitant]
     Active Substance: DEXAMETHASONE
     Indication: BASEDOW^S DISEASE
     Dosage: HIGH?DOSE
  2. PROPRANOLOL [Suspect]
     Active Substance: PROPRANOLOL HYDROCHLORIDE
     Indication: HEART RATE
     Dosage: CUMULATIVE DOSE: 320 MG
  3. METHIMAZOLE. [Concomitant]
     Active Substance: METHIMAZOLE
     Indication: BASEDOW^S DISEASE

REACTIONS (12)
  - Pulse absent [Recovered/Resolved]
  - Ventricular fibrillation [Recovered/Resolved]
  - Thyrotoxic crisis [Recovered/Resolved]
  - Acute kidney injury [Unknown]
  - Unresponsive to stimuli [Recovered/Resolved]
  - Metabolic acidosis [Unknown]
  - Circulatory collapse [Recovered/Resolved]
  - Ventricular arrhythmia [Recovered/Resolved]
  - Cardiac arrest [Recovered/Resolved]
  - Toxicity to various agents [Unknown]
  - Hepatocellular injury [Unknown]
  - Product use in unapproved indication [Unknown]
